FAERS Safety Report 4851801-7 (Version None)
Quarter: 2005Q4

REPORT INFORMATION
  Report Type: 
  Country: None (occurrence: None)
  Receive Date: 20051213
  Receipt Date: 20051201
  Transmission Date: 20060501
  Serious: Yes (Hospitalization)
  Sender: FDA-Public Use
  Company Number: US-JNJFOC-20051200984

PATIENT
  Sex: Female
  Weight: 63.5 kg

DRUGS (12)
  1. INFLIXIMAB [Suspect]
     Indication: RHEUMATOID ARTHRITIS
     Route: 042
  2. METHOTREXATE [Concomitant]
  3. FOLIC ACID [Concomitant]
  4. LISINOPRIL [Concomitant]
  5. PREDNISONE [Concomitant]
  6. SUCRALFATE [Concomitant]
  7. NEXIUM [Concomitant]
  8. CALCIUM+D [Concomitant]
  9. CALCIUM+D [Concomitant]
  10. ZYRTEC [Concomitant]
  11. ALBUTEROL [Concomitant]
     Route: 055
  12. TYLENOL [Concomitant]
     Dosage: 4-6 HOURS

REACTIONS (1)
  - ELECTROLYTE IMBALANCE [None]
